FAERS Safety Report 7249281-X (Version None)
Quarter: 2011Q1

REPORT INFORMATION
  Report Type: 
  Country: None (occurrence: None)
  Receive Date: 20110128
  Receipt Date: 20101123
  Transmission Date: 20110831
  Serious: Yes (Other)
  Sender: FDA-Public Use
  Company Number: US-BAYER-201012258NA

PATIENT
  Sex: Female
  Weight: 58.05 kg

DRUGS (6)
  1. YAZ [Suspect]
     Indication: PRODUCT USED FOR UNKNOWN INDICATION
     Dosage: UNK
     Dates: start: 20070701, end: 20071201
  2. NSAID'S [Concomitant]
  3. IBUPROFEN [Concomitant]
  4. NECON [Concomitant]
  5. HYDROCODONE [Concomitant]
  6. YASMIN [Suspect]
     Indication: CONTRACEPTION
     Dates: start: 20070701, end: 20080801

REACTIONS (6)
  - PROCEDURAL PAIN [None]
  - NAUSEA [None]
  - ABDOMINAL PAIN UPPER [None]
  - DYSPEPSIA [None]
  - HEPATOBILIARY SCAN ABNORMAL [None]
  - VOMITING [None]
